FAERS Safety Report 5160510-9 (Version None)
Quarter: 2006Q4

REPORT INFORMATION
  Report Type: 
  Country: None (occurrence: None)
  Receive Date: 20061129
  Receipt Date: 20061025
  Transmission Date: 20070319
  Serious: Yes (Death, Hospitalization, Other)
  Sender: FDA-Public Use
  Company Number: NL-BOEHRINGER INGELHEIM GMBH, GERMANY-2006-NL-00308NL

PATIENT
  Sex: Male

DRUGS (36)
  1. SPIRIVA [Suspect]
     Indication: DYSPNOEA
     Route: 055
     Dates: start: 20051001, end: 20060701
  2. SPIRIVA [Suspect]
     Route: 055
     Dates: start: 20061016
  3. ATROVENT [Suspect]
     Indication: DYSPNOEA
     Route: 055
     Dates: start: 20050501, end: 20051101
  4. BERODUAL DOSISAEROSOL [Suspect]
     Indication: DYSPNOEA
     Dosage: 50/20MCG
     Route: 055
  5. BERODUAL DOSISAEROSOL [Suspect]
     Dosage: 50/20MCG
     Route: 055
     Dates: start: 20061001
  6. FORADIL [Suspect]
     Indication: DYSPNOEA
     Route: 055
     Dates: start: 20051001, end: 20060101
  7. PANTOZOL [Concomitant]
     Dates: start: 20050501, end: 20050601
  8. PANTOZOL [Concomitant]
     Dates: start: 20050601, end: 20050701
  9. NEXIUM [Concomitant]
     Dates: start: 20050601
  10. ASACOL [Concomitant]
  11. INSULATARD NPH HUMAN [Concomitant]
     Dosage: STRENGTH: 100IU/ML
  12. CALCI CHEW D3 [Concomitant]
     Dosage: STRENGTH: 500MG/400IU  DAILY DOSE: 1000MG/800IU
  13. ACENOCOUMAROL [Concomitant]
     Dosage: SEPARATELY FROM QUESTRAN WITH A 4 HOUR DIFFERENCE
  14. AMIODARON HCL [Concomitant]
     Dates: start: 20061001, end: 20061101
  15. AMIODARON HCL [Concomitant]
     Dates: start: 20061101
  16. SOTALOL HCL [Concomitant]
     Dates: end: 20060301
  17. SOTALOL HCL [Concomitant]
     Dosage: 3D0.5-1T
     Dates: start: 20060301, end: 20060801
  18. SOTALOL HCL [Concomitant]
     Dates: start: 20060801, end: 20061026
  19. LISINOPRIL [Concomitant]
  20. QUESTRAN [Concomitant]
  21. PREDNISOLONE [Concomitant]
     Dates: start: 20060201, end: 20060701
  22. PREDNISOLONE [Concomitant]
     Dates: start: 20060701, end: 20060901
  23. PREDNISOLONE [Concomitant]
     Dates: start: 20060901, end: 20060901
  24. PREDNISOLONE [Concomitant]
     Dates: start: 20061001
  25. PREDNISON [Concomitant]
     Dates: end: 20060101
  26. DOXYCYCLINE [Concomitant]
     Dates: start: 20051001, end: 20051001
  27. DOXYCYCLINE [Concomitant]
     Dates: start: 20051001, end: 20051001
  28. AMOXICILLINE/CLAVULAANZUUR MERCK [Concomitant]
     Dosage: STRENGTH: 500/125MG DAILY DOSE: 1500/375MG
     Dates: start: 20060901, end: 20060901
  29. AVELOX [Concomitant]
     Dates: start: 20051001, end: 20051001
  30. TEMAZEPAM [Concomitant]
  31. CITALOPRAM HYDROBROMIDE [Concomitant]
  32. SALBUTAMOL [Concomitant]
     Indication: DYSPNOEA
     Dosage: MAX 4D1DO PRN
     Dates: start: 20061001
  33. SEREVENT [Concomitant]
     Dates: start: 20061001, end: 20061101
  34. BUDESONIDE [Concomitant]
  35. THEOLAIR [Concomitant]
  36. ACETYLCYSTEINE [Concomitant]
     Dosage: 600-1200MG/DAY

REACTIONS (3)
  - COMA [None]
  - DEATH [None]
  - DYSPNOEA [None]
